FAERS Safety Report 4418243-X (Version None)
Quarter: 2004Q3

REPORT INFORMATION
  Report Type: 
  Country: None (occurrence: None)
  Receive Date: 20040809
  Receipt Date: 20040116
  Transmission Date: 20050211
  Serious: No
  Sender: FDA-Public Use
  Company Number: US-GLAXOSMITHKLINE-A0493565A

PATIENT
  Age: 40 Year
  Sex: Female

DRUGS (2)
  1. PAXIL CR [Suspect]
     Dosage: 12.5MG IN THE MORNING
     Route: 048
  2. BIRTH CONTROL [Concomitant]

REACTIONS (5)
  - ALOPECIA [None]
  - CONTUSION [None]
  - DRY MOUTH [None]
  - INSOMNIA [None]
  - WEIGHT INCREASED [None]
